FAERS Safety Report 14014001 (Version 1)
Quarter: 2017Q3

REPORT INFORMATION
  Report Type: Spontaneous
  Country: AU (occurrence: AU)
  Receive Date: 20170926
  Receipt Date: 20170926
  Transmission Date: 20171128
  Serious: Yes (Other)
  Sender: FDA-Public Use
  Company Number: AU-ALLERGAN-1754597US

PATIENT
  Age: 87 Year
  Sex: Female

DRUGS (3)
  1. ALPHAGAN P [Suspect]
     Active Substance: BRIMONIDINE TARTRATE
     Indication: PRODUCT USED FOR UNKNOWN INDICATION
     Dosage: UNK
     Route: 047
  2. EYLEA [Suspect]
     Active Substance: AFLIBERCEPT
     Indication: PRODUCT USED FOR UNKNOWN INDICATION
     Dosage: UNK UNK, Q MONTH
     Route: 031
     Dates: start: 20170118
  3. ALPHAGAN P [Suspect]
     Active Substance: BRIMONIDINE TARTRATE
     Dosage: UNK
     Route: 001

REACTIONS (7)
  - Mass [Unknown]
  - Visual impairment [Unknown]
  - Alopecia [Unknown]
  - Incorrect route of drug administration [Unknown]
  - Glaucoma [Unknown]
  - Eye infection [Unknown]
  - Cataract [Unknown]

NARRATIVE: CASE EVENT DATE: 2017
